FAERS Safety Report 8665012 (Version 2)
Quarter: 2013Q2

REPORT INFORMATION
  Report Type: Spontaneous
  Country: DK (occurrence: DK)
  Receive Date: 20120715
  Receipt Date: 20130619
  Transmission Date: 20140414
  Serious: Yes (Hospitalization)
  Sender: FDA-Public Use
  Company Number: PHHY2012DK059118

PATIENT
  Age: 15 Year
  Sex: Female
  Weight: 43 kg

DRUGS (1)
  1. MALONETTA [Suspect]
     Indication: ORAL CONTRACEPTION
     Dosage: 150/30
     Route: 048
     Dates: start: 20120406, end: 20120601

REACTIONS (11)
  - Gallbladder disorder [Unknown]
  - Splenomegaly [Unknown]
  - Arthralgia [Unknown]
  - Hepatomegaly [Unknown]
  - Yellow skin [Recovering/Resolving]
  - Ocular icterus [Recovering/Resolving]
  - Nausea [Unknown]
  - Vomiting [Unknown]
  - Fatigue [Unknown]
  - Rash maculo-papular [Recovering/Resolving]
  - Liver disorder [Recovered/Resolved]
